FAERS Safety Report 14471027 (Version 1)
Quarter: 2018Q1

REPORT INFORMATION
  Report Type: Other
  Country: US (occurrence: US)
  Receive Date: 20180131
  Receipt Date: 20180131
  Transmission Date: 20180509
  Serious: No
  Sender: FDA-Public Use
  Company Number: US-ACORDA-ACO_145588_2018

PATIENT
  Age: 54 Year
  Sex: Male

DRUGS (2)
  1. AMPYRA [Suspect]
     Active Substance: DALFAMPRIDINE
     Indication: MULTIPLE SCLEROSIS
  2. AMPYRA [Suspect]
     Active Substance: DALFAMPRIDINE
     Indication: GAIT DISTURBANCE
     Dosage: 10 MG, Q 12 HRS
     Route: 048
     Dates: start: 201007

REACTIONS (6)
  - Musculoskeletal pain [Unknown]
  - Abdominal pain [Unknown]
  - Head injury [Unknown]
  - Headache [Unknown]
  - Road traffic accident [Unknown]
  - Neck pain [Unknown]

NARRATIVE: CASE EVENT DATE: 20171219
